FAERS Safety Report 10764816 (Version 1)
Quarter: 2015Q1

REPORT INFORMATION
  Report Type: Spontaneous
  Country: US (occurrence: None)
  Receive Date: 20150203
  Receipt Date: 20150203
  Transmission Date: 20150721
  Serious: Yes (Other)
  Sender: FDA-Public Use
  Company Number: 2015-000156

PATIENT
  Sex: Female

DRUGS (3)
  1. ESTRACE [Suspect]
     Active Substance: ESTRADIOL
     Dosage: 2 PEA SIZE AMOUNTS NO MORE THAN TWICE A MONTH, VAGINAL
     Route: 067
     Dates: start: 2013
  2. LEVOTHYROXINE [Concomitant]
     Active Substance: LEVOTHYROXINE
  3. ASPIRIN (ACETYLSALICYLIC ACID) [Concomitant]
     Active Substance: ASPIRIN

REACTIONS (4)
  - Stress [None]
  - Cerebrovascular accident [None]
  - Transient ischaemic attack [None]
  - Urticaria [None]

NARRATIVE: CASE EVENT DATE: 201410
